FAERS Safety Report 10633542 (Version 4)
Quarter: 2019Q3

REPORT INFORMATION
  Report Type: Spontaneous
  Country: US (occurrence: US)
  Receive Date: 20141205
  Receipt Date: 20190729
  Transmission Date: 20191004
  Serious: No
  Sender: FDA-Public Use
  Company Number: US-JNJFOC-20141200210

PATIENT
  Age: 17 Year
  Sex: Male

DRUGS (2)
  1. RISPERIDONE. [Suspect]
     Active Substance: RISPERIDONE
     Indication: PRODUCT USED FOR UNKNOWN INDICATION
     Route: 048
  2. RISPERDAL [Suspect]
     Active Substance: RISPERIDONE
     Indication: INTELLECTUAL DISABILITY
     Dosage: VARYING DOSE OF 1 MG TO 2 MG.
     Route: 048
     Dates: start: 200905, end: 201212

REACTIONS (7)
  - Galactorrhoea [Unknown]
  - Obesity [Unknown]
  - Hypertension [Unknown]
  - Product use in unapproved indication [Unknown]
  - Hyperprolactinaemia [Unknown]
  - Off label use [Unknown]
  - Gynaecomastia [Unknown]

NARRATIVE: CASE EVENT DATE: 200905
